FAERS Safety Report 20422641 (Version 1)
Quarter: 2022Q1

REPORT INFORMATION
  Report Type: Spontaneous
  Country: US (occurrence: None)
  Receive Date: 20220203
  Receipt Date: 20220203
  Transmission Date: 20220424
  Serious: Yes (Hospitalization)
  Sender: FDA-Public Use
  Company Number: None

PATIENT
  Sex: Male

DRUGS (11)
  1. DALFAMPRIDINE [Suspect]
     Active Substance: DALFAMPRIDINE
     Indication: Multiple sclerosis
     Route: 048
     Dates: start: 20190926
  2. ANORO ELLIPT [Concomitant]
  3. CHLORHEX GLU [Concomitant]
  4. DALFAMPRIDIN [Concomitant]
  5. DIAZEPAM [Concomitant]
     Active Substance: DIAZEPAM
  6. ACETAMINOPHEN\HYDROCODONE [Concomitant]
     Active Substance: ACETAMINOPHEN\HYDROCODONE
  7. LACTULOSE [Concomitant]
     Active Substance: LACTULOSE
  8. LINZESS [Concomitant]
     Active Substance: LINACLOTIDE
  9. METOPROL SUC [Concomitant]
  10. NORTRIPTYLIN [Concomitant]
  11. ZOLPIDEM [Concomitant]

REACTIONS (1)
  - COVID-19 pneumonia [None]
